FAERS Safety Report 6801662-1 (Version None)
Quarter: 2010Q2

REPORT INFORMATION
  Report Type: 
  Country: None (occurrence: None)
  Receive Date: 20100629
  Receipt Date: 20100618
  Transmission Date: 20101027
  Serious: Yes (Other)
  Sender: FDA-Public Use
  Company Number: PL-JNJFOC-20100606042

PATIENT
  Sex: Male
  Weight: 87 kg

DRUGS (2)
  1. REMICADE [Suspect]
     Indication: ANKYLOSING SPONDYLITIS
     Route: 042
  2. METHOTREXATE [Concomitant]

REACTIONS (4)
  - ANTINUCLEAR ANTIBODY INCREASED [None]
  - DOUBLE STRANDED DNA ANTIBODY [None]
  - DOUBLE STRANDED DNA ANTIBODY POSITIVE [None]
  - HEPATIC STEATOSIS [None]
